FAERS Safety Report 20538769 (Version 1)
Quarter: 2022Q1

REPORT INFORMATION
  Report Type: Spontaneous
  Country: DE (occurrence: DE)
  Receive Date: 20220302
  Receipt Date: 20220302
  Transmission Date: 20220423
  Serious: Yes (Death, Hospitalization)
  Sender: FDA-Public Use
  Company Number: DE-ADRED-07217-02

PATIENT
  Age: 63 Year
  Sex: Male
  Weight: 71 kg

DRUGS (9)
  1. RISPERIDONE [Suspect]
     Active Substance: RISPERIDONE
     Indication: Product used for unknown indication
     Route: 065
  2. SPIRONOLACTONE [Suspect]
     Active Substance: SPIRONOLACTONE
     Indication: Product used for unknown indication
     Dosage: 50 MG, 1-0-0-0
     Route: 065
  3. TORSEMIDE [Suspect]
     Active Substance: TORSEMIDE
     Indication: Product used for unknown indication
     Dosage: 20 UNSPECIFIED UNIT, 1-1-1-0
     Route: 065
  4. PANTOPRAZOLE SODIUM [Suspect]
     Active Substance: PANTOPRAZOLE SODIUM
     Indication: Product used for unknown indication
     Route: 065
  5. METAMIZOL [Concomitant]
     Active Substance: METAMIZOLE SODIUM
     Dosage: 30 DROPS
  6. ORNITHIN [Concomitant]
     Dosage: 3000 MG, 1-0-0-0
  7. CARVEDILOL [Concomitant]
     Active Substance: CARVEDILOL
     Dosage: 3.125 MG SCHEDULE
  8. CYANOCOBALAMIN [Concomitant]
     Active Substance: CYANOCOBALAMIN
     Dosage: 2000 MG, 1-0-0-0
  9. LACTULOSE [Concomitant]
     Active Substance: LACTULOSE

REACTIONS (12)
  - Death [Fatal]
  - Acute abdomen [Unknown]
  - Hyperkalaemia [Unknown]
  - Abdominal distension [Unknown]
  - Hyponatraemia [Unknown]
  - General physical health deterioration [Unknown]
  - Condition aggravated [Unknown]
  - Systemic infection [Unknown]
  - Anaemia [Unknown]
  - Bradycardia [Unknown]
  - Hypotension [Unknown]
  - Oedema peripheral [Unknown]

NARRATIVE: CASE EVENT DATE: 20201018
